FAERS Safety Report 9736286 (Version 1)
Quarter: 2013Q4

REPORT INFORMATION
  Report Type: Spontaneous
  Country: US (occurrence: None)
  Receive Date: 20131204
  Receipt Date: 20131204
  Transmission Date: 20140711
  Serious: Yes (Death, Hospitalization)
  Sender: FDA-Public Use
  Company Number: US-AIKEM-000276

PATIENT
  Age: 74 Year
  Sex: Female

DRUGS (3)
  1. METFORMIN (METFORMIN) [Suspect]
     Route: 048
  2. SPIRONOLACTONE (SPIRONOLACTONE) [Suspect]
  3. FUROSEMIDE (FUROSEMIDE) [Suspect]

REACTIONS (2)
  - Overdose [None]
  - Exposure via ingestion [None]
